FAERS Safety Report 5992910-9 (Version None)
Quarter: 2008Q4

REPORT INFORMATION
  Report Type: 
  Country: None (occurrence: None)
  Receive Date: 20081212
  Receipt Date: 20081209
  Transmission Date: 20090506
  Serious: Yes (Death)
  Sender: FDA-Public Use
  Company Number: US-WYE-H07123708

PATIENT
  Age: 61 Year
  Sex: Male

DRUGS (2)
  1. TORISEL [Suspect]
     Indication: RENAL CELL CARCINOMA
     Route: 042
     Dates: start: 20080401, end: 20080617
  2. BEVACIZUMAB [Suspect]
     Indication: RENAL CELL CARCINOMA
     Dosage: 5MG/KG IV OVER 30-90 MINUTES ON DAYS 1 AND 15
     Route: 042
     Dates: start: 20080401, end: 20080610

REACTIONS (1)
  - DEATH [None]
